FAERS Safety Report 25482812 (Version 1)
Quarter: 2025Q2

REPORT INFORMATION
  Report Type: Spontaneous
  Country: US (occurrence: US)
  Receive Date: 20250626
  Receipt Date: 20250626
  Transmission Date: 20250716
  Serious: No
  Sender: BAYER HEALTHCARE PHARMACEUTICALS INC.
  Company Number: US-BAYER-2025A085010

PATIENT
  Age: 60 Year

DRUGS (1)
  1. GADAVIST [Suspect]
     Active Substance: GADOBUTROL
     Dates: start: 20250611, end: 20250611

REACTIONS (2)
  - Pruritus [None]
  - Urticaria contact [None]

NARRATIVE: CASE EVENT DATE: 20250611
